FAERS Safety Report 6651017-8 (Version None)
Quarter: 2010Q1

REPORT INFORMATION
  Report Type: 
  Country: None (occurrence: None)
  Receive Date: 20100323
  Receipt Date: 20100311
  Transmission Date: 20100710
  Serious: Yes (Death)
  Sender: FDA-Public Use
  Company Number: CLOF-1000774

PATIENT
  Age: 67 Year
  Sex: Male

DRUGS (8)
  1. CLOLAR [Suspect]
     Indication: ACUTE MYELOID LEUKAEMIA
     Dosage: 20 MG/M2, QDX5, INTRAVENOUS
     Route: 042
     Dates: start: 20081113, end: 20081117
  2. CYTARABINE [Suspect]
     Indication: ACUTE MYELOID LEUKAEMIA
     Dosage: 100 MG/M2, QD, 24 HR. CONTINUOUS, INTRAVENOUS
     Route: 042
     Dates: start: 20081112, end: 20081117
  3. ASPIRIN [Concomitant]
  4. TPN [Concomitant]
  5. VORICONAZOLE [Concomitant]
  6. ACYCLOVIR [Concomitant]
  7. LASIX [Concomitant]
  8. IMPENEM (IMIPENEM) [Concomitant]

REACTIONS (5)
  - AORTIC THROMBOSIS [None]
  - BLOOD CREATINE PHOSPHOKINASE INCREASED [None]
  - CEREBELLAR HAEMORRHAGE [None]
  - PLATELET COUNT DECREASED [None]
  - PULMONARY OEDEMA [None]
